FAERS Safety Report 4582206-4 (Version None)
Quarter: 2005Q1

REPORT INFORMATION
  Report Type: 
  Country: None (occurrence: None)
  Receive Date: 20050214
  Receipt Date: 20050131
  Transmission Date: 20050727
  Serious: Yes (Other)
  Sender: FDA-Public Use
  Company Number: CHPA2003US02251

PATIENT
  Age: 30 Year
  Sex: Female

DRUGS (3)
  1. EX-LAX LAXATIVE (NCH) [Suspect]
     Dosage: ORAL
     Route: 048
     Dates: start: 19950101
  2. CORRECTOL [Suspect]
     Dosage: ORAL
     Route: 048
     Dates: start: 19950101
  3. STIMULANT LAXATIVE H.E.B. BRAND [Suspect]
     Dosage: ORAL
     Route: 048
     Dates: start: 19950101

REACTIONS (22)
  - ABDOMINAL PAIN LOWER [None]
  - ABDOMINAL PAIN UPPER [None]
  - ABORTION THREATENED [None]
  - ADHESION [None]
  - ADNEXA UTERI CYST [None]
  - APPENDICITIS [None]
  - BILE DUCT OBSTRUCTION [None]
  - CALCULUS URETERIC [None]
  - CHANGE OF BOWEL HABIT [None]
  - CHOLECYSTITIS [None]
  - CHOLELITHIASIS [None]
  - DRUG DEPENDENCE [None]
  - DRUG EXPOSURE DURING PREGNANCY [None]
  - ECONOMIC PROBLEM [None]
  - EMOTIONAL DISORDER [None]
  - GASTRITIS [None]
  - HELICOBACTER INFECTION [None]
  - INTESTINAL OBSTRUCTION [None]
  - NAUSEA [None]
  - OVARIAN CYST [None]
  - VAGINAL HAEMORRHAGE [None]
  - VOMITING [None]
